FAERS Safety Report 16775967 (Version 12)
Quarter: 2021Q1

REPORT INFORMATION
  Report Type: Spontaneous
  Country: US (occurrence: US)
  Receive Date: 20190905
  Receipt Date: 20210324
  Transmission Date: 20210419
  Serious: Yes (Other)
  Sender: FDA-Public Use
  Company Number: US-PFIZER INC-2019381226

PATIENT
  Age: 78 Year
  Sex: Female

DRUGS (3)
  1. PREMARIN [Suspect]
     Active Substance: ESTROGENS, CONJUGATED
     Indication: VULVOVAGINAL DRYNESS
     Dosage: UNK, DAILY[ INSERT 0.5 APPLICATOR (S) FUL EVERY DAY BY VAGINAL ROUTE]
     Route: 067
  2. PREMARIN [Suspect]
     Active Substance: ESTROGENS, CONJUGATED
     Indication: VAGINAL DISORDER
     Dosage: 1 G, DAILY
     Route: 067
  3. PREMARIN [Suspect]
     Active Substance: ESTROGENS, CONJUGATED
     Indication: PROPHYLAXIS URINARY TRACT INFECTION
     Dosage: UNK, DAILY (2 (TWO) APPLICATOR(S)FUL) (INSERT 0.5 APPLICATOR(S)FUL EVERY DAY BY VAGINAL ROUTE)
     Route: 067

REACTIONS (4)
  - Off label use [Unknown]
  - Macular degeneration [Unknown]
  - Drug effective for unapproved indication [Unknown]
  - Visual impairment [Unknown]
